FAERS Safety Report 8008608-1 (Version None)
Quarter: 2011Q4

REPORT INFORMATION
  Report Type: 
  Country: None (occurrence: None)
  Receive Date: 20111227
  Receipt Date: 20111122
  Transmission Date: 20120403
  Serious: Yes (Other)
  Sender: FDA-Public Use
  Company Number: US-ROCHE-791141

PATIENT
  Sex: Female
  Weight: 51.756 kg

DRUGS (3)
  1. ACCUTANE [Suspect]
     Indication: ACNE
     Route: 065
     Dates: start: 19841015, end: 19850113
  2. ERYTHROMYCIN [Concomitant]
  3. ACCUTANE [Suspect]
     Dates: start: 19911001, end: 19920304

REACTIONS (4)
  - COLITIS ULCERATIVE [None]
  - ANXIETY [None]
  - POUCHITIS [None]
  - INFLAMMATORY BOWEL DISEASE [None]
